FAERS Safety Report 7693213-7 (Version None)
Quarter: 2011Q3

REPORT INFORMATION
  Report Type: 
  Country: None (occurrence: None)
  Receive Date: 20110819
  Receipt Date: 20110811
  Transmission Date: 20111222
  Serious: Yes (Hospitalization, Other)
  Sender: FDA-Public Use
  Company Number: US-AMGEN-USASP2011041437

PATIENT
  Age: 64 Year
  Sex: Female

DRUGS (1)
  1. ENBREL [Suspect]
     Indication: RHEUMATOID ARTHRITIS
     Dosage: UNK
     Dates: start: 20080301

REACTIONS (11)
  - PYREXIA [None]
  - DIZZINESS [None]
  - URINARY TRACT INFECTION [None]
  - PARAESTHESIA [None]
  - BLOOD GLUCOSE DECREASED [None]
  - MUSCULOSKELETAL PAIN [None]
  - FATIGUE [None]
  - DEAFNESS [None]
  - OROPHARYNGEAL PAIN [None]
  - BACK PAIN [None]
  - CHEST PAIN [None]
